FAERS Safety Report 8773834 (Version 1)
Quarter: 2012Q4

REPORT INFORMATION
  Report Type: 
  Country: AU (occurrence: AU)
  Receive Date: 20120907
  Receipt Date: 20120907
  Transmission Date: 20130627
  Serious: Yes (Other)
  Sender: FDA-Public Use
  Company Number: AU-BRISTOL-MYERS SQUIBB COMPANY-16857633

PATIENT
  Age: 87 Year
  Sex: Female

DRUGS (9)
  1. ORENCIA [Suspect]
     Indication: RHEUMATOID ARTHRITIS
     Route: 042
     Dates: start: 20120314
  2. METHOTREXATE [Concomitant]
  3. THYROXINE [Concomitant]
  4. ASPIRIN [Concomitant]
  5. DIAMICRON [Concomitant]
  6. FOLIC ACID [Concomitant]
  7. FRUSEMIDE [Concomitant]
  8. CORTISONE [Concomitant]
  9. LIPITOR [Concomitant]

REACTIONS (1)
  - Weight decreased [Unknown]
